FAERS Safety Report 5451406-3 (Version None)
Quarter: 2007Q3

REPORT INFORMATION
  Report Type: 
  Country: None (occurrence: None)
  Receive Date: 20070913
  Receipt Date: 20070911
  Transmission Date: 20080115
  Serious: Yes (Other)
  Sender: FDA-Public Use
  Company Number: A0680929A

PATIENT
  Age: 52 Year
  Sex: Female

DRUGS (6)
  1. AVANDIA [Suspect]
     Indication: TYPE 2 DIABETES MELLITUS
     Route: 048
     Dates: start: 20060501
  2. GLUCOPHAGE [Concomitant]
  3. COZAAR [Concomitant]
  4. LORTAB [Concomitant]
  5. XANAX [Concomitant]
  6. ANTIHISTAMINE [Concomitant]

REACTIONS (3)
  - BLINDNESS [None]
  - BLINDNESS UNILATERAL [None]
  - VISUAL ACUITY REDUCED [None]
